FAERS Safety Report 5013623-6 (Version None)
Quarter: 2006Q2

REPORT INFORMATION
  Report Type: 
  Country: None (occurrence: None)
  Receive Date: 20060530
  Receipt Date: 20060330
  Transmission Date: 20061013
  Serious: Yes (Hospitalization)
  Sender: FDA-Public Use
  Company Number: FR-GLAXOSMITHKLINE-B0418416A

PATIENT
  Age: 26 Year
  Sex: Female

DRUGS (1)
  1. CLAMOXYL [Suspect]
     Indication: LUNG DISORDER
     Dosage: 1G THREE TIMES PER DAY
     Route: 042
     Dates: start: 20060209, end: 20060214

REACTIONS (5)
  - ALANINE AMINOTRANSFERASE INCREASED [None]
  - ASPARTATE AMINOTRANSFERASE INCREASED [None]
  - CHOLELITHIASIS [None]
  - DRUG EXPOSURE DURING PREGNANCY [None]
  - TRANSAMINASES INCREASED [None]
